FAERS Safety Report 4611098-X (Version None)
Quarter: 2005Q1

REPORT INFORMATION
  Report Type: 
  Country: None (occurrence: None)
  Receive Date: 20050316
  Receipt Date: 20050316
  Transmission Date: 20050727
  Serious: Yes (Disabling)
  Sender: FDA-Public Use
  Company Number: None

PATIENT
  Sex: Male
  Weight: 83.4619 kg

DRUGS (1)
  1. ATORVASTATIN CALCIUM [Suspect]
     Indication: HYPERLIPIDAEMIA
     Dosage: 20 MG TAB 1/2 PO QHS
     Route: 048
     Dates: start: 20020717, end: 20040917

REACTIONS (9)
  - AMNESIA [None]
  - APHASIA [None]
  - ASTHENIA [None]
  - DEAFNESS [None]
  - DYSPEPSIA [None]
  - DYSPHEMIA [None]
  - NEUROPATHY PERIPHERAL [None]
  - TINNITUS [None]
  - TRIGEMINAL NEURALGIA [None]
